FAERS Safety Report 6979311-1 (Version None)
Quarter: 2010Q3

REPORT INFORMATION
  Report Type: 
  Country: None (occurrence: None)
  Receive Date: 20100913
  Receipt Date: 20100830
  Transmission Date: 20110219
  Serious: Yes (Hospitalization)
  Sender: FDA-Public Use
  Company Number: US-MYLANLABS-2010S1015793

PATIENT
  Age: 18 Month
  Sex: Female

DRUGS (3)
  1. PROPRANOLOL [Suspect]
     Indication: HAEMANGIOMA CONGENITAL
     Dosage: DIVIDED INTO 2 DAILY DOSES
     Route: 048
  2. PROPRANOLOL [Suspect]
     Dosage: DIVIDED INTO 2 DAILY DOSES
     Route: 048
  3. PROPRANOLOL [Suspect]
     Dosage: DIVIDED INTO 2 DAILY DOSES
     Route: 048

REACTIONS (2)
  - CONVULSION [None]
  - HYPOGLYCAEMIA [None]
